FAERS Safety Report 9552173 (Version 3)
Quarter: 2013Q4

REPORT INFORMATION
  Report Type: Report from Study
  Country: IN (occurrence: IN)
  Receive Date: 20130925
  Receipt Date: 20131018
  Transmission Date: 20140711
  Serious: Yes (Death, Hospitalization, Other)
  Sender: FDA-Public Use
  Company Number: PHHY2013IN010584

PATIENT
  Age: 29 Year
  Sex: Male

DRUGS (2)
  1. GLIVEC [Suspect]
     Indication: CHRONIC MYELOID LEUKAEMIA
     Dosage: 400 MG, UNK
  2. GLIVEC [Suspect]
     Dosage: 800 MG, UNK
     Route: 048
     Dates: start: 201303

REACTIONS (4)
  - Blast crisis in myelogenous leukaemia [Fatal]
  - White blood cell count increased [Unknown]
  - Varicella [Unknown]
  - Platelet count decreased [Unknown]
